FAERS Safety Report 13157934 (Version 1)
Quarter: 2017Q1

REPORT INFORMATION
  Report Type: Spontaneous
  Country: PL (occurrence: PL)
  Receive Date: 20170127
  Receipt Date: 20170127
  Transmission Date: 20170428
  Serious: Yes (Other)
  Sender: FDA-Public Use
  Company Number: PHHY2017PL010177

PATIENT
  Age: 63 Year
  Sex: Male

DRUGS (1)
  1. EVEROLIMUS [Suspect]
     Active Substance: EVEROLIMUS
     Indication: PRODUCT USED FOR UNKNOWN INDICATION
     Dosage: 10 MG, QD
     Route: 065
     Dates: start: 201311, end: 201606

REACTIONS (4)
  - Interstitial lung disease [Unknown]
  - Disease progression [Unknown]
  - Lymphopenia [Unknown]
  - Malaise [Unknown]

NARRATIVE: CASE EVENT DATE: 201512
